FAERS Safety Report 10713709 (Version 1)
Quarter: 2015Q1

REPORT INFORMATION
  Report Type: Spontaneous
  Country: US (occurrence: US)
  Receive Date: 20150115
  Receipt Date: 20150115
  Transmission Date: 20150721
  Serious: Yes (Other)
  Sender: FDA-Public Use
  Company Number: US-BAXTER-2015BAX000880

PATIENT
  Age: 26 Year
  Sex: Female

DRUGS (4)
  1. PIPERACILLIN/TAZOBACTAM [Suspect]
     Active Substance: PIPERACILLIN SODIUM\TAZOBACTAM SODIUM
     Indication: NECROTISING FASCIITIS
     Route: 065
  2. CLINDAMYCIN [Suspect]
     Active Substance: CLINDAMYCIN\CLINDAMYCIN PHOSPHATE
     Indication: NECROTISING FASCIITIS
     Route: 065
  3. ANCEF [Concomitant]
     Active Substance: CEFAZOLIN SODIUM
     Indication: NECROTISING FASCIITIS
     Route: 065
  4. VANCOMYCIN INJECTION, USP [Suspect]
     Active Substance: VANCOMYCIN
     Indication: NECROTISING FASCIITIS
     Route: 042

REACTIONS (1)
  - Sepsis [Recovered/Resolved]
